FAERS Safety Report 5787506-8 (Version None)
Quarter: 2008Q2

REPORT INFORMATION
  Report Type: 
  Country: None (occurrence: None)
  Receive Date: 20080625
  Receipt Date: 20080107
  Transmission Date: 20081010
  Serious: No
  Sender: FDA-Public Use
  Company Number: US-ASTRAZENECA-2007UW23088

PATIENT
  Age: 68 Year
  Sex: Male
  Weight: 108.9 kg

DRUGS (2)
  1. PULMICORT [Suspect]
     Indication: ASTHMA
     Route: 055
     Dates: start: 20050101
  2. SINGULAIR [Concomitant]

REACTIONS (2)
  - COUGH [None]
  - SENSATION OF FOREIGN BODY [None]
